FAERS Safety Report 6355679-4 (Version None)
Quarter: 2009Q3

REPORT INFORMATION
  Report Type: 
  Country: None (occurrence: None)
  Receive Date: 20090910
  Receipt Date: 20090826
  Transmission Date: 20100115
  Serious: Yes (Other)
  Sender: FDA-Public Use
  Company Number: 001668

PATIENT
  Age: 54 Year
  Sex: Male

DRUGS (1)
  1. DEPONIT [Suspect]
     Dosage: 0.5 MG/KG/MIN GIVEN OVER 20 MINUTES ON TWO OCCASIONS SEPARATED BY ONE WEEK INTRAVENOUS (NOT OTHERWIS
     Route: 042

REACTIONS (1)
  - MIGRAINE WITH AURA [None]
